FAERS Safety Report 20047859 (Version 1)
Quarter: 2021Q4

REPORT INFORMATION
  Report Type: Report from Study
  Country: BR (occurrence: BR)
  Receive Date: 20211109
  Receipt Date: 20211109
  Transmission Date: 20220303
  Serious: Yes (Hospitalization)
  Sender: FDA-Public Use
  Company Number: BR-NOVARTISPH-NVSC2021BR254490

PATIENT
  Sex: Male

DRUGS (2)
  1. COSENTYX [Suspect]
     Active Substance: SECUKINUMAB
     Indication: Psoriasis
     Dosage: UNK
     Route: 065
     Dates: start: 202103
  2. COSENTYX [Suspect]
     Active Substance: SECUKINUMAB
     Dosage: UNK
     Route: 065
     Dates: start: 20210620

REACTIONS (7)
  - Mental disorder [Unknown]
  - Decreased immune responsiveness [Unknown]
  - Eschar [Unknown]
  - Alopecia [Unknown]
  - Hair growth abnormal [Unknown]
  - Psoriasis [Unknown]
  - Erythema [Unknown]
